FAERS Safety Report 4424248-5 (Version None)
Quarter: 2004Q3

REPORT INFORMATION
  Report Type: 
  Country: None (occurrence: None)
  Receive Date: 20040810
  Receipt Date: 20040810
  Transmission Date: 20050211
  Serious: Yes (Hospitalization)
  Sender: FDA-Public Use
  Company Number: None

PATIENT
  Age: 61 Year
  Sex: Female
  Weight: 75 kg

DRUGS (1)
  1. GENGRAF [Suspect]
     Indication: IMMUNOSUPPRESSION
     Dosage: 75 MG BID
     Dates: start: 19971101

REACTIONS (3)
  - CYTOMEGALOVIRUS COLITIS [None]
  - LARGE INTESTINAL ULCER [None]
  - LOWER GASTROINTESTINAL HAEMORRHAGE [None]
